FAERS Safety Report 10410849 (Version 1)
Quarter: 2014Q3

REPORT INFORMATION
  Report Type: Spontaneous
  Country: US (occurrence: US)
  Receive Date: 20140826
  Receipt Date: 20140826
  Transmission Date: 20150326
  Serious: No
  Sender: FDA-Public Use
  Company Number: US-BRISTOL-MYERS SQUIBB COMPANY-21018924

PATIENT
  Age: 57 Year
  Sex: Female
  Weight: 90.7 kg

DRUGS (1)
  1. KENALOG [Suspect]
     Active Substance: TRIAMCINOLONE ACETONIDE

REACTIONS (3)
  - Vomiting [Unknown]
  - Migraine [Unknown]
  - Rash [Unknown]

NARRATIVE: CASE EVENT DATE: 199712
